FAERS Safety Report 9384951 (Version 1)
Quarter: 2013Q3

REPORT INFORMATION
  Report Type: Spontaneous
  Country: US (occurrence: US)
  Receive Date: 20130705
  Receipt Date: 20130705
  Transmission Date: 20140515
  Serious: Yes (Other)
  Sender: FDA-Public Use
  Company Number: US-GLAXOSMITHKLINE-A1016704A

PATIENT
  Age: 69 Year
  Sex: Female

DRUGS (9)
  1. BENLYSTA [Suspect]
     Indication: SYSTEMIC LUPUS ERYTHEMATOSUS
     Route: 042
     Dates: start: 2012
  2. PREDNISONE [Concomitant]
  3. WARFARIN [Concomitant]
  4. SIMVASTATIN [Concomitant]
  5. LOSARTAN [Concomitant]
  6. TRIAMTERENE HCTZ [Concomitant]
  7. PRILOSEC [Concomitant]
  8. IRON [Concomitant]
  9. ADVAIR [Concomitant]

REACTIONS (1)
  - Urinary tract infection [Not Recovered/Not Resolved]
